FAERS Safety Report 5144471-4 (Version None)
Quarter: 2006Q4

REPORT INFORMATION
  Report Type: 
  Country: None (occurrence: None)
  Receive Date: 20061106
  Receipt Date: 20061006
  Transmission Date: 20070319
  Serious: Yes (Hospitalization, Disabling)
  Sender: FDA-Public Use
  Company Number: US-ROXANE LABORATORIES, INC-2006-BP-11720RO

PATIENT
  Sex: Female
  Weight: 58 kg

DRUGS (8)
  1. DEXAMETHASONE TABLETS USP, 4 MG [Suspect]
     Indication: BRAIN NEOPLASM
     Dosage: 4 MG QID
     Route: 048
     Dates: start: 20050603, end: 20050820
  2. ZOLOFT [Concomitant]
     Route: 048
     Dates: end: 20060101
  3. VESICARE [Concomitant]
     Indication: INCONTINENCE
  4. FOSAMAX [Concomitant]
     Dosage: 70 MG PER WEEK
     Route: 048
     Dates: start: 20040101
  5. FEOSOL [Concomitant]
     Indication: ANAEMIA
  6. VITAMIN D [Concomitant]
  7. CALCIUM [Concomitant]
  8. MILK OF MAGNESIA TAB [Concomitant]
     Route: 048

REACTIONS (4)
  - DEEP VEIN THROMBOSIS [None]
  - INCONTINENCE [None]
  - SOMNOLENCE [None]
  - WALKING DISABILITY [None]
